FAERS Safety Report 7661309-1 (Version None)
Quarter: 2011Q3

REPORT INFORMATION
  Report Type: 
  Country: None (occurrence: None)
  Receive Date: 20110805
  Receipt Date: 20100924
  Transmission Date: 20111222
  Serious: No
  Sender: FDA-Public Use
  Company Number: US-ABBOTT-10P-163-0673163-00

PATIENT
  Sex: Male
  Weight: 88.984 kg

DRUGS (1)
  1. NIASPAN [Suspect]
     Indication: HYPERLIPIDAEMIA
     Dosage: AT NIGHT
     Dates: start: 20100824

REACTIONS (6)
  - PHOTOSENSITIVITY REACTION [None]
  - ERYTHEMA [None]
  - DRUG DOSE OMISSION [None]
  - PRURITUS [None]
  - HEARING IMPAIRED [None]
  - SKIN BURNING SENSATION [None]
